FAERS Safety Report 9784525 (Version 1)
Quarter: 2013Q4

REPORT INFORMATION
  Report Type: Spontaneous
  Country: US (occurrence: US)
  Receive Date: 20131226
  Receipt Date: 20131226
  Transmission Date: 20140711
  Serious: No
  Sender: FDA-Public Use
  Company Number: US-PFIZER INC-2013366627

PATIENT
  Sex: 0

DRUGS (1)
  1. SUTENT [Suspect]
     Dosage: UNK, CYCLIC

REACTIONS (1)
  - Haematuria [Unknown]
